FAERS Safety Report 14030150 (Version 1)
Quarter: 2017Q4

REPORT INFORMATION
  Report Type: Report from Study
  Country: US (occurrence: US)
  Receive Date: 20171001
  Receipt Date: 20171001
  Transmission Date: 20180321
  Serious: Yes (Hospitalization)
  Sender: FDA-Public Use
  Company Number: US-AMGEN-USASL2017146188

PATIENT
  Age: 55 Year
  Sex: Male

DRUGS (1)
  1. REPATHA [Suspect]
     Active Substance: EVOLOCUMAB
     Indication: PRODUCT USED FOR UNKNOWN INDICATION
     Dosage: 3.5 ML, QMO
     Route: 065

REACTIONS (2)
  - Psychotic disorder [Unknown]
  - Off label use [Unknown]
